FAERS Safety Report 15599274 (Version 2)
Quarter: 2018Q4

REPORT INFORMATION
  Report Type: Spontaneous
  Country: RU (occurrence: RU)
  Receive Date: 20181108
  Receipt Date: 20181207
  Transmission Date: 20190205
  Serious: Yes (Congenital Anomaly)
  Sender: FDA-Public Use
  Company Number: RU-SAKK-2018SA304192AA

PATIENT
  Sex: Male

DRUGS (3)
  1. CLEXANE [Suspect]
     Active Substance: ENOXAPARIN SODIUM
     Indication: HYPERCOAGULATION
     Dosage: 0.2 UNK, QD
     Route: 064
     Dates: start: 20180801
  2. PROGESTERONE. [Suspect]
     Active Substance: PROGESTERONE
     Indication: ABORTION SPONTANEOUS
     Dosage: 200 MG, BID
     Route: 064
     Dates: start: 20180823
  3. FEMIBION [MINERALS NOS;VITAMINS NOS] [Suspect]
     Active Substance: MINERALS\VITAMINS
     Indication: VITAMIN SUPPLEMENTATION
     Dosage: 1 DF, QD
     Route: 064
     Dates: start: 20180801

REACTIONS (3)
  - Cleft palate [Unknown]
  - Labial tie [Unknown]
  - Foetal exposure during pregnancy [Unknown]
